FAERS Safety Report 8266676-6 (Version None)
Quarter: 2012Q2

REPORT INFORMATION
  Report Type: 
  Country: None (occurrence: None)
  Receive Date: 20120408
  Receipt Date: 20120405
  Transmission Date: 20120825
  Serious: Yes (Death)
  Sender: FDA-Public Use
  Company Number: US-AMGEN-USASP2012019935

PATIENT
  Age: 73 Year
  Sex: Female
  Weight: 44.263 kg

DRUGS (2)
  1. ARANESP [Suspect]
     Indication: APLASTIC ANAEMIA
     Dosage: 500 MUG, Q3WK
     Route: 058
     Dates: start: 20110719, end: 20120125
  2. TAXOL [Concomitant]

REACTIONS (1)
  - DEATH [None]
